FAERS Safety Report 5064231-2 (Version None)
Quarter: 2006Q3

REPORT INFORMATION
  Report Type: 
  Country: None (occurrence: None)
  Receive Date: 20060728
  Receipt Date: 20060523
  Transmission Date: 20061208
  Serious: Yes (Hospitalization)
  Sender: FDA-Public Use
  Company Number: PHBS2006BE07687

PATIENT
  Age: 53 Year
  Sex: Male
  Weight: 100 kg

DRUGS (6)
  1. LAMISIL [Suspect]
     Indication: NAIL TINEA
     Dosage: 250 MG/D
     Route: 048
     Dates: start: 20060412, end: 20060522
  2. KREDEX [Suspect]
     Dosage: 25 MG/D
     Route: 065
  3. TEVETEN [Concomitant]
  4. ANTIPHLOGISTICS,OTHER [Concomitant]
  5. PRAVASTATIN [Concomitant]
  6. VITAMIN B COMPLEX CAP [Concomitant]

REACTIONS (4)
  - BRADYCARDIA [None]
  - DRUG INTERACTION [None]
  - MOOD ALTERED [None]
  - SYNCOPE [None]
